FAERS Safety Report 8624495-2 (Version None)
Quarter: 2012Q3

REPORT INFORMATION
  Report Type: 
  Country: None (occurrence: None)
  Receive Date: 20120827
  Receipt Date: 20120815
  Transmission Date: 20120928
  Serious: Yes (Hospitalization)
  Sender: FDA-Public Use
  Company Number: US-VERTEX PHARMACEUTICAL INC.-2012-019728

PATIENT
  Sex: Male

DRUGS (6)
  1. RIBAVIRIN [Concomitant]
     Dosage: UNK
     Dates: start: 20120101, end: 20120112
  2. PEGASYS [Concomitant]
     Indication: HEPATITIS C
     Dosage: UNK
     Dates: start: 20110901
  3. PEGASYS [Concomitant]
     Dosage: UNK
     Dates: start: 20120101, end: 20120112
  4. VX-950 [Suspect]
     Indication: HEPATITIS C
     Dosage: UNK
     Route: 048
     Dates: start: 20110901
  5. VX-950 [Suspect]
     Dosage: UNK
     Route: 048
     Dates: start: 20120101, end: 20120112
  6. RIBAVIRIN [Concomitant]
     Indication: HEPATITIS C
     Dosage: UNK
     Dates: start: 20110901

REACTIONS (1)
  - INTESTINAL OBSTRUCTION [None]
